FAERS Safety Report 25315524 (Version 1)
Quarter: 2025Q2

REPORT INFORMATION
  Report Type: Spontaneous
  Country: US (occurrence: US)
  Receive Date: 20250514
  Receipt Date: 20250514
  Transmission Date: 20250716
  Serious: Yes (Hospitalization, Other)
  Sender: BAXTER
  Company Number: US-BAXTER-2025BAX015275

PATIENT
  Sex: Male
  Weight: 114.7 kg

DRUGS (4)
  1. CYCLOPHOSPHAMIDE [Suspect]
     Active Substance: CYCLOPHOSPHAMIDE
     Indication: Acute lymphocytic leukaemia
     Route: 065
     Dates: start: 20250311, end: 20250314
  2. DOXORUBICIN [Suspect]
     Active Substance: DOXORUBICIN
     Indication: Acute lymphocytic leukaemia
     Route: 065
     Dates: start: 20250314, end: 20250314
  3. VINCRISTINE SULFATE [Suspect]
     Active Substance: VINCRISTINE SULFATE
     Indication: Acute lymphocytic leukaemia
     Route: 065
     Dates: start: 20250311, end: 20250311
  4. METHOTREXATE SODIUM [Suspect]
     Active Substance: METHOTREXATE SODIUM
     Indication: Acute lymphocytic leukaemia
     Route: 065
     Dates: start: 20250311, end: 20250312

REACTIONS (6)
  - Febrile neutropenia [Recovered/Resolved]
  - Pyrexia [Unknown]
  - Fatigue [Unknown]
  - Thrombocytopenia [Unknown]
  - Epistaxis [Unknown]
  - Anaemia [Unknown]

NARRATIVE: CASE EVENT DATE: 20250318
